FAERS Safety Report 4389241-X (Version None)
Quarter: 2004Q2

REPORT INFORMATION
  Report Type: 
  Country: None (occurrence: None)
  Receive Date: 20040628
  Receipt Date: 20040614
  Transmission Date: 20050107
  Serious: Yes (Hospitalization)
  Sender: FDA-Public Use
  Company Number: 04P-008-0263776-00

PATIENT
  Age: 43 Year
  Sex: Male

DRUGS (3)
  1. WARFARIN SODIUM [Suspect]
     Dosage: 125 MG, PER ORAL;  14 MG, 1 IN 1 D, PER ORAL, THERAPY DATES: DAY 4 - UNKNOWN
     Route: 048
  2. OXYCODONE HCL [Concomitant]
  3. ENOXAPARIN SODIUM [Concomitant]

REACTIONS (8)
  - DEPRESSED LEVEL OF CONSCIOUSNESS [None]
  - INTENTIONAL OVERDOSE [None]
  - INTERNATIONAL NORMALISED RATIO DECREASED [None]
  - INTERNATIONAL NORMALISED RATIO INCREASED [None]
  - LACERATION [None]
  - MIOSIS [None]
  - MULTIPLE DRUG OVERDOSE [None]
  - VOMITING [None]
